FAERS Safety Report 13277587 (Version 1)
Quarter: 2017Q1

REPORT INFORMATION
  Report Type: Report from Study
  Country: None (occurrence: CA)
  Receive Date: 20170228
  Receipt Date: 20170228
  Transmission Date: 20170428
  Serious: Yes (Other)
  Sender: FDA-Public Use
  Company Number: CA-ABBVIE-17P-028-1891197-00

PATIENT
  Sex: Male

DRUGS (1)
  1. HUMIRA [Suspect]
     Active Substance: ADALIMUMAB
     Indication: ANKYLOSING SPONDYLITIS
     Route: 058
     Dates: start: 20160611

REACTIONS (3)
  - Nasal polyps [Not Recovered/Not Resolved]
  - Post procedural complication [Not Recovered/Not Resolved]
  - Nasal congestion [Not Recovered/Not Resolved]
